FAERS Safety Report 20637097 (Version 2)
Quarter: 2022Q2

REPORT INFORMATION
  Report Type: Report from Study
  Country: AU (occurrence: None)
  Receive Date: 20220325
  Receipt Date: 20220408
  Transmission Date: 20220721
  Serious: Yes (Death)
  Sender: FDA-Public Use
  Company Number: AU-Merck Healthcare KGaA-9308493

PATIENT

DRUGS (1)
  1. BAVENCIO [Suspect]
     Active Substance: AVELUMAB
     Indication: Neoplasm malignant

REACTIONS (1)
  - Disease progression [Fatal]
